FAERS Safety Report 8791320 (Version 1)
Quarter: 2012Q4

REPORT INFORMATION
  Report Type: Spontaneous
  Country: US (occurrence: None)
  Receive Date: 20120904
  Receipt Date: 20120904
  Transmission Date: 20130627
  Serious: Yes (Other)
  Sender: FDA-Public Use
  Company Number: 2012031197

PATIENT
  Age: 47 Year
  Sex: Female
  Weight: 65.77 kg

DRUGS (32)
  1. HIZENTRA [Suspect]
     Indication: IMMUNODEFICIENCY COMMON VARIABLE
     Dosage: 3 g 1x/week, 3 gm (15 ml), 1-2 sites, 1-2 hours Subcutaneous)
     Route: 058
     Dates: start: 20120213
  2. HIZENTRA [Suspect]
     Indication: IMMUNODEFICIENCY COMMON VARIABLE
     Dosage: 3 g 1x/week, Therapy date: Aug-2012, in 1-2 sites over 1-2 hours Subcutaneous
     Route: 058
     Dates: start: 201208
  3. CYMBALTA (DULOXETINE HYDROCHLORIDE) [Concomitant]
  4. CELEBREX (CELECOXIB) [Concomitant]
  5. MORPHINE SULFATE (MORPHINE SULFATE) [Concomitant]
  6. HYDROMORPHONE (HYDROMORPHONE) [Concomitant]
  7. FAMVIR (FAMCICLOVIR) [Concomitant]
  8. ASPIRIN (ACETYLSALICYLIC ACID) [Concomitant]
  9. ZANTAC (RANITIDINE HYDROCHLORIDE) [Concomitant]
  10. ZOMIG (ZOLMITRIPTAN) [Concomitant]
  11. NYSTATIN (NYSTATIN) [Concomitant]
  12. TOPAMAX (TOPIRAMATE) [Concomitant]
  13. VITAMIN D (ERGOCALCIFEROL) [Concomitant]
  14. AMBIEN (ZOLPIDEM TARTRATE) [Concomitant]
  15. SYNTHROID (LEVOTHYROXINE SODIUM) [Concomitant]
  16. FENTANYL (FENTANYL) [Concomitant]
  17. FLONASE (FLUTICASONE PROPIONATE) [Concomitant]
  18. VALTREX (VALACICLOVIR HYDROCHLORIDE) [Concomitant]
  19. TEMAZEPAM (TEMAZEPAM) [Concomitant]
  20. COMBIVENT (COMBIVENT /01261001/) [Concomitant]
  21. LUNESTA (ESZOPICLONE) [Concomitant]
  22. PERCOCET (OXYCOCET) [Concomitant]
  23. PLAVIX (CLOPIDOGREL) [Concomitant]
  24. XYREM (OXYBATE SODIUM) [Concomitant]
  25. TRAZODONE (TRAZODONE) [Concomitant]
  26. HYDROCORTISONE (HYDROCORTISONE) [Concomitant]
  27. ACETAMINOPHEN (PARACETAMOL),ACETYLSAL ACID,CAFFEINE CITRATE [Concomitant]
  28. T3 (THYROXIN T3) [Concomitant]
  29. DIPHENHYDRAMINE (DIPHENHYDRAMINE) [Concomitant]
  30. LIDOCAINE/PRILOCAINE (EMLA /00675501/) [Concomitant]
  31. EPI-PEN (EPINEPHRINE) [Concomitant]
  32. ZYRTEC (CETRIZINE HYDROCHLORIDE) [Concomitant]

REACTIONS (8)
  - Headache [None]
  - Nausea [None]
  - Infusion site swelling [None]
  - Nasal congestion [None]
  - Migraine [None]
  - Meningitis aseptic [None]
  - Intracranial pressure increased [None]
  - Throat irritation [None]
